FAERS Safety Report 12111311 (Version 2)
Quarter: 2016Q1

REPORT INFORMATION
  Report Type: Spontaneous
  Country: JP (occurrence: JP)
  Receive Date: 20160224
  Receipt Date: 20160322
  Transmission Date: 20160526
  Serious: No
  Sender: FDA-Public Use
  Company Number: JP-EISAI MEDICAL RESEARCH-EC-2016-014554

PATIENT
  Sex: Female
  Weight: 90 kg

DRUGS (1)
  1. HALAVEN [Suspect]
     Active Substance: ERIBULIN MESYLATE
     Indication: BREAST CANCER RECURRENT
     Route: 041
     Dates: start: 20160127

REACTIONS (5)
  - Hypoaesthesia [Unknown]
  - Oedema [Unknown]
  - Malaise [Unknown]
  - Asthenia [Unknown]
  - Madarosis [Unknown]

NARRATIVE: CASE EVENT DATE: 2016
